FAERS Safety Report 6491522-0 (Version None)
Quarter: 2009Q4

REPORT INFORMATION
  Report Type: 
  Country: None (occurrence: None)
  Receive Date: 20091123
  Receipt Date: 20090824
  Transmission Date: 20100525
  Serious: No
  Sender: FDA-Public Use
  Company Number: 8050870

PATIENT
  Age: 29 Year
  Sex: Female
  Weight: 75 kg

DRUGS (4)
  1. CIMZIA [Suspect]
     Indication: RHEUMATOID ARTHRITIS
     Dosage: 400 MG SC
     Route: 058
     Dates: start: 20090730
  2. METHOTREXATE [Concomitant]
  3. MOBIC [Concomitant]
  4. TRI-SPRINTEC [Concomitant]

REACTIONS (2)
  - DRUG ADMINISTRATION ERROR [None]
  - INJECTION SITE REACTION [None]
